FAERS Safety Report 8510119-1 (Version None)
Quarter: 2012Q3

REPORT INFORMATION
  Report Type: 
  Country: None (occurrence: None)
  Receive Date: 20120713
  Receipt Date: 20120705
  Transmission Date: 20120928
  Serious: Yes (Other)
  Sender: FDA-Public Use
  Company Number: US-ASTRAZENECA-2011SE38444

PATIENT
  Age: 60 Year
  Sex: Female

DRUGS (19)
  1. PLAVIX [Concomitant]
     Route: 048
  2. METOPROLOL TARTRATE [Concomitant]
     Route: 048
  3. PRINZIDE [Concomitant]
     Dosage: 20 MG- 12.5 MG AS DIRECTED
     Route: 048
  4. IBUPROFEN [Concomitant]
     Route: 048
  5. CRESTOR [Suspect]
     Route: 048
  6. ATACAND [Suspect]
     Route: 048
  7. NORVASC [Suspect]
     Route: 065
  8. CLONAZEPAM [Concomitant]
     Route: 048
  9. KLONOPIN [Concomitant]
     Route: 048
  10. ATACAND HCT [Suspect]
     Route: 048
  11. ALEVE [Concomitant]
     Route: 048
  12. LEVOTHYROXINE SODIUM [Concomitant]
     Route: 048
  13. ASPIRIN [Concomitant]
     Route: 048
  14. LISINOPRIL [Suspect]
     Route: 048
  15. LISINOPRIL AND HYDROCHLOROTHIAZIDE [Concomitant]
     Dosage: 10/12.5 MG QD
     Route: 048
  16. IBUPROFEN [Concomitant]
     Dosage: PRN
     Route: 048
  17. SIMVASTATIN [Concomitant]
     Route: 048
  18. TOPROL-XL [Suspect]
     Route: 048
  19. ASPIRIN [Concomitant]
     Route: 048

REACTIONS (15)
  - CEREBROVASCULAR ACCIDENT [None]
  - DRUG HYPERSENSITIVITY [None]
  - OSTEOARTHRITIS [None]
  - TRANSIENT ISCHAEMIC ATTACK [None]
  - BONE DISORDER [None]
  - CAROTID ARTERY STENOSIS [None]
  - BLOOD PRESSURE DECREASED [None]
  - CHONDROPATHY [None]
  - HYPOTHYROIDISM [None]
  - ADVERSE EVENT [None]
  - ESSENTIAL HYPERTENSION [None]
  - PERIPHERAL VASCULAR DISORDER [None]
  - METABOLIC SYNDROME [None]
  - MYALGIA [None]
  - NASOPHARYNGITIS [None]
